FAERS Safety Report 7800324-1 (Version None)
Quarter: 2011Q4

REPORT INFORMATION
  Report Type: 
  Country: None (occurrence: None)
  Receive Date: 20111006
  Receipt Date: 20100312
  Transmission Date: 20120403
  Serious: No
  Sender: FDA-Public Use
  Company Number: US-BAYER-201016578NA

PATIENT
  Age: 70 Year
  Sex: Male

DRUGS (4)
  1. VERAPAMIL [Concomitant]
     Indication: CARDIAC DISORDER
  2. COUMADIN [Concomitant]
     Indication: CARDIAC DISORDER
  3. LEVITRA [Suspect]
     Indication: PRODUCT USED FOR UNKNOWN INDICATION
  4. DIGOXIN [Concomitant]
     Indication: CARDIAC DISORDER

REACTIONS (1)
  - DRUG INEFFECTIVE [None]
